FAERS Safety Report 4630350-5 (Version None)
Quarter: 2005Q2

REPORT INFORMATION
  Report Type: 
  Country: None (occurrence: None)
  Receive Date: 20050405
  Receipt Date: 20050405
  Transmission Date: 20051028
  Serious: Yes (Hospitalization)
  Sender: FDA-Public Use
  Company Number: None

PATIENT
  Age: 79 Year
  Sex: Male
  Weight: 69.3096 kg

DRUGS (11)
  1. DOXORUBICIN - ALTERNATING KAVE REGIMEN [Suspect]
     Indication: PROSTATE CANCER METASTATIC
     Dosage: SEE IMAGE
     Route: 042
     Dates: start: 20041221
  2. VINBLASTINE - ALTERNATING KAVE REGIMEN [Suspect]
     Indication: PROSTATE CANCER METASTATIC
     Dosage: SEE IMAGE
     Route: 042
     Dates: start: 20041228
  3. KETOCONOZOLE [Concomitant]
  4. ESTRAMUSTINE [Concomitant]
  5. COMPAZINE [Concomitant]
  6. HYDROCORTISONE [Concomitant]
  7. ASPIRIN [Concomitant]
  8. FLOMAX [Concomitant]
  9. MOTRIN [Concomitant]
  10. LUPRIN [Concomitant]
  11. ZOMETA [Concomitant]

REACTIONS (23)
  - ALANINE AMINOTRANSFERASE INCREASED [None]
  - ANOREXIA [None]
  - ASPARTATE AMINOTRANSFERASE INCREASED [None]
  - BLOOD BILIRUBIN INCREASED [None]
  - BODY TEMPERATURE INCREASED [None]
  - BONE MARROW DEPRESSION [None]
  - BONE PAIN [None]
  - CONSTIPATION [None]
  - COUGH [None]
  - DEHYDRATION [None]
  - EPIGASTRIC DISCOMFORT [None]
  - FATIGUE [None]
  - FEBRILE NEUTROPENIA [None]
  - HYPERGLYCAEMIA [None]
  - HYPOCALCAEMIA [None]
  - HYPOKALAEMIA [None]
  - HYPOMAGNESAEMIA [None]
  - HYPONATRAEMIA [None]
  - NAUSEA [None]
  - PRODUCTIVE COUGH [None]
  - PROTEIN TOTAL ABNORMAL [None]
  - PYREXIA [None]
  - WEIGHT DECREASED [None]
